FAERS Safety Report 4800969-7 (Version None)
Quarter: 2005Q4

REPORT INFORMATION
  Report Type: 
  Country: None (occurrence: None)
  Receive Date: 20051017
  Receipt Date: 20050707
  Transmission Date: 20060501
  Serious: Yes (Hospitalization, Other)
  Sender: FDA-Public Use
  Company Number: US-MERCK-0507USA01256

PATIENT
  Age: 79 Year
  Sex: Female

DRUGS (1)
  1. VIOXX [Suspect]
     Route: 048
     Dates: start: 20000101, end: 20040901

REACTIONS (11)
  - ANAEMIA OF CHRONIC DISEASE [None]
  - ARTHRITIS [None]
  - CONFUSIONAL STATE [None]
  - DILATATION ATRIAL [None]
  - DIVERTICULUM [None]
  - GOUTY ARTHRITIS [None]
  - HAEMORRHOIDS [None]
  - MENTAL STATUS CHANGES [None]
  - MITRAL VALVE INCOMPETENCE [None]
  - MONARTHRITIS [None]
  - MYOCARDIAL INFARCTION [None]
